FAERS Safety Report 5910526-7 (Version None)
Quarter: 2008Q4

REPORT INFORMATION
  Report Type: 
  Country: None (occurrence: None)
  Receive Date: 20081007
  Receipt Date: 20080225
  Transmission Date: 20090506
  Serious: No
  Sender: FDA-Public Use
  Company Number: US-ASTRAZENECA-2008UW03911

PATIENT
  Age: 46 Year
  Sex: Female
  Weight: 83.9 kg

DRUGS (4)
  1. ARIMIDEX [Suspect]
     Indication: BREAST CANCER
     Route: 048
     Dates: start: 20071101
  2. LISINOPRIL [Concomitant]
  3. METOPROLOL TARTRATE [Concomitant]
  4. PAROXETINE HCL [Concomitant]

REACTIONS (3)
  - BACK PAIN [None]
  - BURNING SENSATION [None]
  - HOT FLUSH [None]
